FAERS Safety Report 5025478-4 (Version None)
Quarter: 2006Q2

REPORT INFORMATION
  Report Type: 
  Country: None (occurrence: None)
  Receive Date: 20060608
  Receipt Date: 20060523
  Transmission Date: 20061013
  Serious: Yes (Hospitalization)
  Sender: FDA-Public Use
  Company Number: 2006BI007648

PATIENT
  Age: 47 Year
  Sex: Female

DRUGS (1)
  1. AVONEX [Suspect]
     Indication: MULTIPLE SCLEROSIS
     Dosage: 30 UG; QW; IM
     Route: 030
     Dates: start: 20001201

REACTIONS (7)
  - ASPIRATION [None]
  - CONDITION AGGRAVATED [None]
  - DIARRHOEA [None]
  - DISEASE PROGRESSION [None]
  - HYPOREFLEXIA [None]
  - MULTIPLE SCLEROSIS [None]
  - PNEUMONIA [None]
